FAERS Safety Report 6904957-6 (Version None)
Quarter: 2010Q3

REPORT INFORMATION
  Report Type: 
  Country: None (occurrence: None)
  Receive Date: 20100804
  Receipt Date: 20090814
  Transmission Date: 20110219
  Serious: No
  Sender: FDA-Public Use
  Company Number: US-PFIZER INC-2009231633

PATIENT
  Sex: Male
  Weight: 86.168 kg

DRUGS (14)
  1. LYRICA [Suspect]
     Indication: PAIN IN EXTREMITY
     Dosage: UNK
     Route: 048
     Dates: start: 20090501, end: 20090601
  2. DARVOCET [Concomitant]
     Dosage: 650 MG, 3X/DAY
  3. SYNTHROID [Concomitant]
     Dosage: 0.175MG FOR 6 DAYS IN THE WEEK
  4. ATENOLOL [Concomitant]
     Dosage: 50 MG, 2X/DAY
  5. PROTONIX [Concomitant]
     Dosage: 40 MG, 2X/DAY
  6. PRAVACHOL [Concomitant]
     Dosage: UNK
  7. ACETYLSALICYLIC ACID [Concomitant]
     Dosage: 81 MG, 1X/DAY
  8. HYDROCHLOROTHIAZIDE [Concomitant]
     Dosage: 12.5 MG, 1X/DAY
  9. LOSARTAN [Concomitant]
     Dosage: 50 MG, 1X/DAY
  10. TAMSULOSIN [Concomitant]
     Dosage: 0.4 MG, 1X/DAY
  11. SPIRIVA [Concomitant]
     Dosage: UNK
  12. MOMETASONE FUROATE [Concomitant]
     Dosage: UNK
  13. SEREVENT [Concomitant]
     Dosage: UNK
  14. ALBUTEROL [Concomitant]
     Dosage: UNK

REACTIONS (1)
  - OEDEMA PERIPHERAL [None]
